FAERS Safety Report 24525183 (Version 1)
Quarter: 2024Q4

REPORT INFORMATION
  Report Type: Spontaneous
  Country: US (occurrence: US)
  Receive Date: 20241019
  Receipt Date: 20241019
  Transmission Date: 20250114
  Serious: No
  Sender: TORRENT PHARMA INC.
  Company Number: US-TORRENT-00013801

PATIENT
  Sex: Female

DRUGS (1)
  1. ESCITALOPRAM [Suspect]
     Active Substance: ESCITALOPRAM OXALATE
     Indication: Product used for unknown indication
     Dosage: ONE WHOLE 5 MG TABLET ALONG WITH HALF OF THE 5 MG TABLET BY CUTTING IT INTO HALF
     Route: 065

REACTIONS (2)
  - Wrong technique in product usage process [Unknown]
  - Urine oxalate [Unknown]
